FAERS Safety Report 9870080 (Version 1)
Quarter: 2014Q1

REPORT INFORMATION
  Report Type: Spontaneous
  Country: US (occurrence: None)
  Receive Date: 20140203
  Receipt Date: 20140203
  Transmission Date: 20141002
  Serious: Yes (Other)
  Sender: FDA-Public Use
  Company Number: None

PATIENT
  Sex: 0

DRUGS (2)
  1. SODIUM BICARBONATE [Suspect]
     Dosage: STRENGTH: 1 MEQ/ML (84 MG/ML)
     Route: 042
  2. MORPHINE SULFATE [Suspect]

REACTIONS (4)
  - Medication error [None]
  - Circumstance or information capable of leading to medication error [None]
  - Product packaging issue [None]
  - Product colour issue [None]
